FAERS Safety Report 12631009 (Version 2)
Quarter: 2016Q3

REPORT INFORMATION
  Report Type: Spontaneous
  Country: US (occurrence: US)
  Receive Date: 20160808
  Receipt Date: 20160808
  Transmission Date: 20161109
  Serious: No
  Sender: FDA-Public Use
  Company Number: US-BEH-2015051832

PATIENT
  Sex: Female
  Weight: 83 kg

DRUGS (23)
  1. L-M-X [Concomitant]
     Indication: PREMEDICATION
     Dosage: 1 DOSE AS DIRECTED
     Route: 030
  2. TIZANIDINE HCL 4 MG CAPSULE [Concomitant]
     Route: 048
  3. PROAIR HFA [Concomitant]
     Active Substance: ALBUTEROL SULFATE
     Dosage: 90 MCG, 1 DOSE AS DIRECTED
  4. BOTOX [Concomitant]
     Active Substance: ONABOTULINUMTOXINA
     Dosage: 100 UNITS , AS DIRECTED
  5. METOPROLOL SUCCINATE. [Concomitant]
     Active Substance: METOPROLOL SUCCINATE
     Dosage: 1 DOSE DAILY
     Route: 048
  6. PROBIOTIC 4X 10 MG-15MG TABLET DR [Concomitant]
     Dosage: 10-15 MG, 1 TAB DAILY
     Route: 048
  7. PRAVASTATIN SODIUM 40 MG [Concomitant]
     Dosage: 1 DOSE DAILY
     Route: 048
  8. PREVACID 30 MG CAPSULE DR [Concomitant]
     Dosage: 1 DOSE DAILY
     Route: 048
  9. HIZENTRA [Suspect]
     Active Substance: HUMAN IMMUNOGLOBULIN G
     Indication: IMMUNODEFICIENCY COMMON VARIABLE
     Route: 058
  10. FISH OIL 100-160 MG CAPSULE [Concomitant]
     Dosage: 100-160 MG,  1 TAB DAILY
     Route: 048
  11. OSTEO BI-FLEX 250-200 MG TABLET [Concomitant]
     Dosage: 250-200 MG; 1 TAB DAILY
     Route: 048
  12. SINGULAIR [Concomitant]
     Active Substance: MONTELUKAST SODIUM
     Route: 048
  13. MAGNESIUM 250 MG TABLET [Concomitant]
     Dosage: 1 TAB DAILY
     Route: 048
  14. CALCIUM+D 500MG-1000 TAB CHEW [Concomitant]
     Dosage: 500-1000 MG , 1 TAB DAILY
     Route: 048
  15. ALLEGRA D-12 HOUR [Concomitant]
     Active Substance: FEXOFENADINE HYDROCHLORIDE\PSEUDOEPHEDRINE HYDROCHLORIDE
     Dosage: 1 TAB DAILY
     Route: 048
  16. ZYRTEC [Concomitant]
     Active Substance: CETIRIZINE HYDROCHLORIDE
     Route: 048
  17. MOBIC [Concomitant]
     Active Substance: MELOXICAM
     Route: 048
  18. DIPHENHYDRAMINE. [Concomitant]
     Active Substance: DIPHENHYDRAMINE
     Dosage: 1 DOSE AS DIRECTED
     Route: 048
  19. WELLBUTRIN 100 MG TABLET [Concomitant]
     Route: 048
  20. HIZENTRA [Suspect]
     Active Substance: HUMAN IMMUNOGLOBULIN G
     Indication: IMMUNODEFICIENCY COMMON VARIABLE
     Route: 058
  21. QVAR 80 MCG AER W/ADAP [Concomitant]
     Dosage: 1 TAB TWO TIMES A DAY
     Route: 048
  22. ACETAMINOPHEN. [Concomitant]
     Active Substance: ACETAMINOPHEN
     Dosage: 1 DOSE AS DIRECTED
  23. EPIPEN AUTOINJECTOR [Concomitant]
     Indication: ANAPHYLACTIC REACTION
     Dosage: 1 DOSE AS DIRECTED
     Route: 030

REACTIONS (3)
  - Headache [Unknown]
  - Nausea [Unknown]
  - Infusion site pain [Unknown]
